FAERS Safety Report 17030837 (Version 1)
Quarter: 2019Q4

REPORT INFORMATION
  Report Type: Report from Study
  Country: DE (occurrence: DE)
  Receive Date: 20191114
  Receipt Date: 20191114
  Transmission Date: 20200122
  Serious: Yes (Other)
  Sender: FDA-Public Use
  Company Number: PHHY2015DE083661

PATIENT
  Sex: Female

DRUGS (1)
  1. GILENYA [Suspect]
     Active Substance: FINGOLIMOD HYDROCHLORIDE
     Indication: MULTIPLE SCLEROSIS
     Dosage: UNK, QD
     Route: 048
     Dates: start: 20141217

REACTIONS (8)
  - Neuralgia [Unknown]
  - Blood alkaline phosphatase decreased [Unknown]
  - Gamma-glutamyltransferase increased [Recovered/Resolved]
  - Onychomycosis [Unknown]
  - Fatigue [Unknown]
  - Lymphocyte count decreased [Unknown]
  - Lymphocyte count increased [Unknown]
  - White blood cell count decreased [Recovered/Resolved]

NARRATIVE: CASE EVENT DATE: 20150506
